FAERS Safety Report 6445385-X (Version None)
Quarter: 2009Q4

REPORT INFORMATION
  Report Type: 
  Country: None (occurrence: None)
  Receive Date: 20091118
  Receipt Date: 20091105
  Transmission Date: 20100525
  Serious: Yes (Hospitalization)
  Sender: FDA-Public Use
  Company Number: PHEH2009US15285

PATIENT
  Sex: Female

DRUGS (7)
  1. RECLAST [Suspect]
     Indication: OSTEOPOROSIS
     Dosage: 5 MG, ONCE/SINGLE
     Dates: start: 20090827, end: 20090827
  2. PLAVIX [Concomitant]
     Indication: CORONARY ARTERY DISEASE
     Dosage: UNK, UNK
  3. NAMENDA [Concomitant]
     Indication: DEMENTIA
     Dosage: UNK, UNK
  4. NITROGLYCERIN [Concomitant]
     Indication: CORONARY ARTERY DISEASE
     Dosage: UNK, UNK
  5. COREG [Concomitant]
     Dosage: UNK, UNK
  6. LISINOPRIL [Concomitant]
     Dosage: UNK, UNK
  7. NORVASC [Concomitant]
     Indication: BLOOD PRESSURE
     Dosage: UNK, UNK

REACTIONS (7)
  - ATROPHY [None]
  - BONE PAIN [None]
  - DEMENTIA [None]
  - DEMENTIA ALZHEIMER'S TYPE [None]
  - MENTAL STATUS CHANGES [None]
  - MYALGIA [None]
  - TINNITUS [None]
